FAERS Safety Report 8952882 (Version 2)
Quarter: 2013Q1

REPORT INFORMATION
  Report Type: Spontaneous
  Country: US (occurrence: US)
  Receive Date: 20121203
  Receipt Date: 20130111
  Transmission Date: 20140127
  Serious: No
  Sender: FDA-Public Use
  Company Number: US-009507513-1211USA009848

PATIENT
  Age: 24 Year
  Sex: Female
  Weight: 57.6 kg

DRUGS (2)
  1. NEXPLANON [Suspect]
     Indication: CONTRACEPTION
     Dosage: FREQUENCY: EVERY 3 YEARS
     Route: 059
     Dates: start: 20121105
  2. NEXPLANON [Suspect]
     Dosage: UNK
     Dates: start: 20121105

REACTIONS (3)
  - Scab [Unknown]
  - Implant site pain [Unknown]
  - Erythema [Unknown]
